FAERS Safety Report 9532316 (Version 1)
Quarter: 2013Q3

REPORT INFORMATION
  Report Type: Report from Study
  Country: NL (occurrence: NL)
  Receive Date: 20130918
  Receipt Date: 20130918
  Transmission Date: 20140515
  Serious: Yes (Death, Hospitalization)
  Sender: FDA-Public Use
  Company Number: PHHO2013NL011959

PATIENT
  Sex: 0

DRUGS (2)
  1. SANDIMMUN [Suspect]
     Indication: STEM CELL TRANSPLANT
     Dosage: 600 MG, UNK
     Route: 048
     Dates: start: 20130114, end: 20130215
  2. MYCOPHENOLIC ACID [Suspect]
     Indication: STEM CELL TRANSPLANT
     Dosage: 2160 MG, UNK
     Route: 048
     Dates: start: 20130117, end: 20130125

REACTIONS (2)
  - Euthanasia [Fatal]
  - Graft versus host disease in intestine [Not Recovered/Not Resolved]
